FAERS Safety Report 8225331-9 (Version None)
Quarter: 2012Q1

REPORT INFORMATION
  Report Type: 
  Country: None (occurrence: None)
  Receive Date: 20120321
  Receipt Date: 20120312
  Transmission Date: 20120608
  Serious: No
  Sender: FDA-Public Use
  Company Number: JP-GLAXOSMITHKLINE-B0720983A

PATIENT
  Age: 7 Decade
  Sex: Female

DRUGS (2)
  1. TYKERB [Suspect]
     Indication: BREAST CANCER
     Dosage: 1250MG PER DAY
     Route: 048
     Dates: start: 20110301
  2. XELODA [Concomitant]
     Dosage: 3600MG PER DAY
     Route: 048
     Dates: start: 20110301

REACTIONS (1)
  - DIARRHOEA [None]
